FAERS Safety Report 21148605 (Version 3)
Quarter: 2022Q4

REPORT INFORMATION
  Report Type: Spontaneous
  Country: US (occurrence: US)
  Receive Date: 20220729
  Receipt Date: 20221018
  Transmission Date: 20230113
  Serious: Yes (Hospitalization)
  Sender: FDA-Public Use
  Company Number: US-PFIZER INC-PV202200032237

PATIENT
  Age: 88 Year
  Sex: Female
  Weight: 74.376 kg

DRUGS (2)
  1. IBRANCE [Suspect]
     Active Substance: PALBOCICLIB
     Dosage: 100 MG
  2. ARIMISOL [Concomitant]
     Dosage: UNK

REACTIONS (4)
  - Tumour marker increased [Unknown]
  - Vocal cord paralysis [Unknown]
  - Hypoacusis [Unknown]
  - Confusional state [Unknown]
